FAERS Safety Report 6577959-X (Version None)
Quarter: 2010Q1

REPORT INFORMATION
  Report Type: 
  Country: None (occurrence: None)
  Receive Date: 20100211
  Receipt Date: 20100201
  Transmission Date: 20100710
  Serious: Yes (Death)
  Sender: FDA-Public Use
  Company Number: TW-BAXTER-2010BH002065

PATIENT
  Age: 82 Year
  Sex: Female

DRUGS (4)
  1. DIANEAL [Suspect]
     Indication: PERITONEAL DIALYSIS
     Route: 033
     Dates: start: 20050501
  2. DIANEAL [Suspect]
     Route: 033
     Dates: start: 20050501
  3. DIANEAL [Suspect]
     Indication: PERITONEAL DIALYSIS
     Route: 033
     Dates: start: 20050501
  4. DIANEAL [Suspect]
     Route: 033
     Dates: start: 20050501

REACTIONS (1)
  - CARDIOVASCULAR DISORDER [None]
